FAERS Safety Report 16706055 (Version 1)
Quarter: 2019Q3

REPORT INFORMATION
  Report Type: Spontaneous
  Country: US (occurrence: US)
  Receive Date: 20190815
  Receipt Date: 20190815
  Transmission Date: 20191004
  Serious: Yes (Other)
  Sender: FDA-Public Use
  Company Number: US-PFIZER INC-2019346168

PATIENT
  Age: 71 Year
  Sex: Female
  Weight: 84.99 kg

DRUGS (2)
  1. SULFASALAZINE. [Suspect]
     Active Substance: SULFASALAZINE
     Dosage: 1000 MG, 2X/DAY (500 MG TABLET 2 TABLETS BID )
     Route: 048
  2. K PLUS [Concomitant]
     Dosage: UNK (SLOW RELEASE)

REACTIONS (5)
  - Groin pain [Not Recovered/Not Resolved]
  - Drug ineffective [Unknown]
  - Arthralgia [Not Recovered/Not Resolved]
  - Neuropathy peripheral [Unknown]
  - Musculoskeletal pain [Not Recovered/Not Resolved]
